FAERS Safety Report 7353263 (Version 5)
Quarter: 2015Q4

REPORT INFORMATION
  Report Type: Report from Study
  Country: US (occurrence: US)
  Receive Date: 20100413
  Receipt Date: 20151020
  Transmission Date: 20160305
  Serious: Yes (Congenital Anomaly)
  Sender: FDA-Public Use
  Company Number: US-JNJFOC-20100400979

PATIENT
  Sex: Male

DRUGS (2)
  1. INFLIXIMAB [Suspect]
     Active Substance: INFLIXIMAB
     Indication: FOETAL EXPOSURE DURING PREGNANCY
     Route: 064
     Dates: start: 20040924
  2. 5-ASA [Concomitant]
     Active Substance: MESALAMINE
     Route: 064

REACTIONS (1)
  - Laryngomalacia [Not Recovered/Not Resolved]

NARRATIVE: CASE EVENT DATE: 200908
